FAERS Safety Report 4370647-X (Version None)
Quarter: 2004Q2

REPORT INFORMATION
  Report Type: 
  Country: None (occurrence: None)
  Receive Date: 20040525
  Receipt Date: 20040511
  Transmission Date: 20050107
  Serious: Yes (Death, Other)
  Sender: FDA-Public Use
  Company Number: GB-JNJFOC-20031100729

PATIENT
  Age: 86 Year
  Sex: Female

DRUGS (4)
  1. REMINYL [Suspect]
     Indication: DEMENTIA ALZHEIMER'S TYPE
     Dosage: 12 MG, 2 IN 1 DAY, ORAL
     Route: 048
     Dates: end: 20030926
  2. LISINOPRIL [Concomitant]
  3. CIPROFLOXACIN [Concomitant]
  4. DIGOXIN [Concomitant]

REACTIONS (6)
  - ANOREXIA [None]
  - ASPARTATE AMINOTRANSFERASE INCREASED [None]
  - BLOOD ALKALINE PHOSPHATASE INCREASED [None]
  - BLOOD BILIRUBIN INCREASED [None]
  - CHOLELITHIASIS [None]
  - CONFUSIONAL STATE [None]
